FAERS Safety Report 16512906 (Version 3)
Quarter: 2019Q3

REPORT INFORMATION
  Report Type: Spontaneous
  Country: US (occurrence: US)
  Receive Date: 20190702
  Receipt Date: 20190716
  Transmission Date: 20191004
  Serious: Yes (Hospitalization, Other)
  Sender: FDA-Public Use
  Company Number: US-PFIZER INC-2018375175

PATIENT
  Age: 71 Year
  Sex: Male
  Weight: 106.58 kg

DRUGS (3)
  1. DETROL LA [Suspect]
     Active Substance: TOLTERODINE TARTRATE
     Dosage: 4 MG, 2X/DAY
     Route: 048
  2. DETROL LA [Suspect]
     Active Substance: TOLTERODINE TARTRATE
     Indication: POLLAKIURIA
     Dosage: 8 MG, DAILY (4MG TWICE DAILY BY MOUTH) (2 BY MOUTH DAILY)
     Route: 048
  3. DETROL LA [Suspect]
     Active Substance: TOLTERODINE TARTRATE
     Dosage: 2 MG, 1X/DAY
     Dates: end: 201905

REACTIONS (9)
  - Renal impairment [Unknown]
  - Urinary incontinence [Not Recovered/Not Resolved]
  - Product dose omission [Not Recovered/Not Resolved]
  - Flatulence [Unknown]
  - Drug ineffective [Unknown]
  - Intentional product use issue [Unknown]
  - Peripheral swelling [Unknown]
  - Gout [Recovering/Resolving]
  - Abnormal faeces [Not Recovered/Not Resolved]

NARRATIVE: CASE EVENT DATE: 201905
